FAERS Safety Report 8621568-5 (Version None)
Quarter: 2012Q3

REPORT INFORMATION
  Report Type: 
  Country: None (occurrence: None)
  Receive Date: 20120825
  Receipt Date: 20120803
  Transmission Date: 20120928
  Serious: Yes (Hospitalization, Other)
  Sender: FDA-Public Use
  Company Number: JP-009507513-1207JPN011041

PATIENT

DRUGS (5)
  1. TELAVIC [Suspect]
     Dosage: 2250 MG, QD
     Route: 048
     Dates: start: 20120709
  2. TELAVIC [Suspect]
     Dosage: 1500 MG, QD
     Route: 048
     Dates: start: 20120713
  3. PEG-INTRON [Suspect]
     Dosage: 0.75 MICROGRAM PER KILOGRAM, UNK
     Route: 058
     Dates: start: 20120716
  4. PEG-INTRON [Suspect]
     Dosage: 1.5MCG/KG
     Route: 058
     Dates: start: 20120709
  5. REBETOL [Suspect]
     Dosage: 800 MG, QD
     Route: 048
     Dates: start: 20120709

REACTIONS (1)
  - NEUTROPHIL COUNT DECREASED [None]
